FAERS Safety Report 24674843 (Version 2)
Quarter: 2025Q1

REPORT INFORMATION
  Report Type: Spontaneous
  Country: US (occurrence: US)
  Receive Date: 20241128
  Receipt Date: 20250102
  Transmission Date: 20250409
  Serious: No
  Sender: BAUSCH AND LOMB
  Company Number: US-BAUSCHBL-2024BNL037704

PATIENT
  Age: 69 Year
  Sex: Female

DRUGS (2)
  1. MIEBO [Suspect]
     Active Substance: PERFLUOROHEXYLOCTANE
     Indication: Dry eye
     Route: 047
     Dates: start: 202411
  2. XIIDRA [Suspect]
     Active Substance: LIFITEGRAST
     Indication: Dry eye
     Route: 047
     Dates: start: 202407

REACTIONS (8)
  - Pain [Recovered/Resolved]
  - Vision blurred [Recovered/Resolved]
  - Therapeutic product effect decreased [Unknown]
  - Product delivery mechanism issue [Unknown]
  - Wrong dose [Unknown]
  - Product storage error [Unknown]
  - Circumstance or information capable of leading to medication error [Unknown]
  - Product complaint [Unknown]

NARRATIVE: CASE EVENT DATE: 20240101
